FAERS Safety Report 7855027-4 (Version None)
Quarter: 2011Q4

REPORT INFORMATION
  Report Type: 
  Country: None (occurrence: None)
  Receive Date: 20111026
  Receipt Date: 20111020
  Transmission Date: 20120403
  Serious: Yes (Hospitalization)
  Sender: FDA-Public Use
  Company Number: US-AMGEN-STX292999

PATIENT
  Age: 60 Year
  Sex: Male

DRUGS (3)
  1. CARDIZEM [Concomitant]
  2. BETAPACE [Concomitant]
  3. ETANERCEPT [Suspect]
     Indication: PSORIASIS
     Dosage: 50 MG, QWK
     Route: 058
     Dates: start: 20060416, end: 20080116

REACTIONS (2)
  - CARDIAC FAILURE [None]
  - PANCYTOPENIA [None]
